FAERS Safety Report 8240316-4 (Version None)
Quarter: 2012Q1

REPORT INFORMATION
  Report Type: 
  Country: None (occurrence: None)
  Receive Date: 20120328
  Receipt Date: 20120320
  Transmission Date: 20120608
  Serious: Yes (Other)
  Sender: FDA-Public Use
  Company Number: US-AMGEN-USASP2012018088

PATIENT
  Age: 40 Year
  Sex: Female

DRUGS (2)
  1. ENBREL [Suspect]
     Indication: RHEUMATOID ARTHRITIS
     Dosage: 50 MG, QWK
     Dates: start: 20080101
  2. METHOTREXATE [Concomitant]
     Dosage: 8 MG, UNK
     Dates: start: 20090101

REACTIONS (8)
  - SPINAL DEFORMITY [None]
  - BACK PAIN [None]
  - PAIN [None]
  - FOOT DEFORMITY [None]
  - FIBROMYALGIA [None]
  - HEADACHE [None]
  - CARPAL TUNNEL SYNDROME [None]
  - VOCAL CORD THICKENING [None]
